FAERS Safety Report 9342355 (Version 1)
Quarter: 2013Q2

REPORT INFORMATION
  Report Type: Spontaneous
  Country: DE (occurrence: DE)
  Receive Date: 20130611
  Receipt Date: 20130611
  Transmission Date: 20140414
  Serious: Yes (Life-Threatening, Hospitalization)
  Sender: FDA-Public Use
  Company Number: DE-ELI_LILLY_AND_COMPANY-DE201306000651

PATIENT
  Sex: Male

DRUGS (2)
  1. HUMALOG LISPRO [Suspect]
     Indication: TYPE 3 DIABETES MELLITUS
     Dosage: 17 U, QD
     Route: 058
  2. HUMALOG LISPRO [Suspect]
     Dosage: 17 U, QD
     Route: 058
     Dates: start: 20130515, end: 20130531

REACTIONS (2)
  - Blood glucose fluctuation [Recovered/Resolved]
  - Hypoglycaemic unconsciousness [Recovered/Resolved]
